FAERS Safety Report 9275351 (Version 3)
Quarter: 2013Q2

REPORT INFORMATION
  Report Type: Spontaneous
  Country: FR (occurrence: None)
  Receive Date: 20130430
  Receipt Date: 20130619
  Transmission Date: 20140414
  Serious: Yes (Hospitalization)
  Sender: FDA-Public Use
  Company Number: ACO_35523_2013

PATIENT
  Age: 44 Year
  Sex: Male

DRUGS (2)
  1. FAMPRIDINE [Suspect]
     Indication: MULTIPLE SCLEROSIS
     Route: 048
     Dates: start: 20120703
  2. MADOPAR (BENSERAZIDE HYDROCHLORIDE, LEVODOPA) [Concomitant]

REACTIONS (11)
  - Multiple sclerosis relapse [None]
  - Fall [None]
  - Urinary tract infection [None]
  - Renal impairment [None]
  - Deep vein thrombosis [None]
  - Urinary retention [None]
  - Muscle spasticity [None]
  - Phlebitis [None]
  - Anxiety [None]
  - Constipation [None]
  - Benign prostatic hyperplasia [None]
